FAERS Safety Report 24749918 (Version 4)
Quarter: 2025Q1

REPORT INFORMATION
  Report Type: Spontaneous
  Country: US (occurrence: US)
  Receive Date: 20241218
  Receipt Date: 20250117
  Transmission Date: 20250409
  Serious: No
  Sender: SANOFI AVENTIS
  Company Number: US-SA-2024SA372145

PATIENT
  Sex: Female

DRUGS (1)
  1. DUPIXENT [Suspect]
     Active Substance: DUPILUMAB

REACTIONS (4)
  - Injection site urticaria [Not Recovered/Not Resolved]
  - Device malfunction [Unknown]
  - Device leakage [Unknown]
  - Injection site pain [Not Recovered/Not Resolved]
